FAERS Safety Report 5639085-3 (Version None)
Quarter: 2008Q1

REPORT INFORMATION
  Report Type: 
  Country: None (occurrence: None)
  Receive Date: 20080226
  Receipt Date: 20080219
  Transmission Date: 20080703
  Serious: Yes (Disabling, Other)
  Sender: FDA-Public Use
  Company Number: PHFR2007GB01572

PATIENT
  Age: 56 Year
  Sex: Female

DRUGS (5)
  1. ACLASTA [Suspect]
     Indication: OSTEOPOROSIS
     Dosage: 5MG DAILY
     Route: 042
     Dates: start: 20070109
  2. CORTICOSTEROIDS [Concomitant]
     Indication: MULTIPLE SCLEROSIS
     Route: 065
  3. BACLOFEN [Concomitant]
     Indication: MUSCLE SPASTICITY
     Dosage: 70UG/DAY
     Route: 048
  4. DIAZEPAM [Concomitant]
     Indication: MUSCLE SPASTICITY
     Dosage: 5MG DAILY
     Route: 048
  5. DIAZEPAM [Concomitant]
     Dosage: 3 DAYS OF 5MG IV
     Route: 042
     Dates: start: 20070201, end: 20070201

REACTIONS (7)
  - INFLUENZA LIKE ILLNESS [None]
  - MOBILITY DECREASED [None]
  - MULTIPLE SCLEROSIS RELAPSE [None]
  - MYALGIA [None]
  - PAIN [None]
  - PAIN IN EXTREMITY [None]
  - RENAL PAIN [None]
